FAERS Safety Report 4441162-X (Version None)
Quarter: 2004Q3

REPORT INFORMATION
  Report Type: 
  Country: None (occurrence: None)
  Receive Date: 20040728
  Receipt Date: 20040324
  Transmission Date: 20050211
  Serious: No
  Sender: FDA-Public Use
  Company Number: USA040363051

PATIENT
  Age: 9 Year
  Sex: Female
  Weight: 28 kg

DRUGS (1)
  1. STRATTERA [Suspect]
     Indication: LEARNING DISABILITY
     Dosage: 25 MG DAY
     Dates: start: 20040307

REACTIONS (5)
  - DISTURBANCE IN ATTENTION [None]
  - DYSGRAPHIA [None]
  - NERVOUSNESS [None]
  - PSYCHOMOTOR HYPERACTIVITY [None]
  - WEIGHT DECREASED [None]
